FAERS Safety Report 4718838-X (Version None)
Quarter: 2005Q3

REPORT INFORMATION
  Report Type: 
  Country: None (occurrence: None)
  Receive Date: 20050719
  Receipt Date: 20050705
  Transmission Date: 20060218
  Serious: Yes (Other)
  Sender: FDA-Public Use
  Company Number: 2005096053

PATIENT
  Sex: Female

DRUGS (1)
  1. ROGAINE [Suspect]
     Dosage: 1 ML BID THEN QD, TOPICAL
     Route: 061
     Dates: start: 20040101

REACTIONS (1)
  - CERVIX CARCINOMA [None]
